FAERS Safety Report 14654590 (Version 2)
Quarter: 2018Q1

REPORT INFORMATION
  Report Type: Spontaneous
  Country: JP (occurrence: JP)
  Receive Date: 20180319
  Receipt Date: 20180321
  Transmission Date: 20180509
  Serious: Yes (Death, Life-Threatening)
  Sender: FDA-Public Use
  Company Number: JP-PFIZER INC-2018110240

PATIENT
  Age: 63 Year
  Sex: Female

DRUGS (2)
  1. DOCETAXEL. [Suspect]
     Active Substance: DOCETAXEL
     Indication: METASTATIC UTERINE CANCER
     Dosage: 70 MG/M2, CYCLIC (TRI-WEEKLY)
  2. CARBOPLATIN. [Suspect]
     Active Substance: CARBOPLATIN
     Indication: METASTATIC UTERINE CANCER
     Dosage: UNK, UNK (AUC 5)

REACTIONS (4)
  - Tumour lysis syndrome [Fatal]
  - Renal injury [Fatal]
  - Tumour embolism [Fatal]
  - Obstructive shock [Fatal]
